FAERS Safety Report 5190036-8 (Version None)
Quarter: 2006Q4

REPORT INFORMATION
  Report Type: 
  Country: None (occurrence: None)
  Receive Date: 20061215
  Receipt Date: 20061204
  Transmission Date: 20070319
  Serious: Yes (Life-Threatening, Hospitalization)
  Sender: FDA-Public Use
  Company Number: DE-2006-038155

PATIENT
  Age: 66 Year
  Sex: Female
  Weight: 98 kg

DRUGS (18)
  1. MAGNEVIST [Suspect]
     Indication: ANGIOGRAM
     Route: 042
     Dates: start: 20050923, end: 20050923
  2. NOVORAPID          (INSULIN ASPART) [Concomitant]
  3. LAXOBERAL                               (SODIUM PICOSULFATE) [Concomitant]
  4. DEKRISTOL [Concomitant]
  5. VITAMINS WITH MINERALS [Concomitant]
  6. SODIUM BICARBONATE IN PLASTIC CONTAINER [Concomitant]
  7. CALCIUM ACETATE (CALCIUM ACETATE) [Concomitant]
  8. DIGITOXIN TAB [Concomitant]
  9. MARCUMAR [Concomitant]
  10. INSULIN BASAL      (INSULIN ISOPHANE HUMAN SEMISYNTHETIC) [Concomitant]
  11. PANTOZOL            (PANTOPRAZOLE SODIUM) [Concomitant]
  12. CERTOPARIN SODIUM                        (CERTOPARIN SODIUM) [Concomitant]
  13. TEMAZEPAM [Concomitant]
  14. VALORON N                     (TILIDINE PHOSPHATE, NALOXONE HYDROCHLOR [Concomitant]
  15. NEURONTIN [Concomitant]
  16. MAGNESIUM VERLA DRAGEES [Concomitant]
  17. FERRLECIT                               (FERRIC SODIUM GLUCONATE COMPL [Concomitant]
  18. ARANESP [Concomitant]

REACTIONS (7)
  - CHEST PAIN [None]
  - DRUG INTOLERANCE [None]
  - DYSPNOEA [None]
  - HAEMODYNAMIC INSTABILITY [None]
  - INFLAMMATION [None]
  - PULMONARY OEDEMA [None]
  - SEPSIS [None]
